FAERS Safety Report 25009119 (Version 1)
Quarter: 2025Q1

REPORT INFORMATION
  Report Type: Spontaneous
  Country: US (occurrence: US)
  Receive Date: 20250225
  Receipt Date: 20250225
  Transmission Date: 20250408
  Serious: Yes (Other)
  Sender: PFIZER
  Company Number: US-PFIZER INC-202500041062

PATIENT
  Sex: Female

DRUGS (1)
  1. LITFULO [Suspect]
     Active Substance: RITLECITINIB TOSYLATE

REACTIONS (2)
  - Syncope [Unknown]
  - Hypotension [Unknown]
